FAERS Safety Report 6819094-9 (Version None)
Quarter: 2010Q3

REPORT INFORMATION
  Report Type: 
  Country: None (occurrence: None)
  Receive Date: 20100707
  Receipt Date: 20100628
  Transmission Date: 20110219
  Serious: Yes (Hospitalization)
  Sender: FDA-Public Use
  Company Number: US-ELI_LILLY_AND_COMPANY-US201006007538

PATIENT
  Sex: Female
  Weight: 111.57 kg

DRUGS (3)
  1. BYETTA [Suspect]
     Indication: TYPE 2 DIABETES MELLITUS
     Dosage: 5 UG, 2/D
     Route: 058
     Dates: start: 20070101
  2. AMARYL [Concomitant]
     Dosage: 4 MG, DAILY (1/D)
     Dates: start: 20070101
  3. METFORMIN HCL [Concomitant]
     Dosage: 500 MG, 2/D
     Dates: start: 20070101

REACTIONS (8)
  - BREAST CYST [None]
  - CERVICAL POLYP [None]
  - DEPRESSED MOOD [None]
  - DRUG DOSE OMISSION [None]
  - FEELING ABNORMAL [None]
  - NAUSEA [None]
  - UTERINE DILATION AND CURETTAGE [None]
  - WEIGHT DECREASED [None]
